FAERS Safety Report 5694736-2 (Version None)
Quarter: 2008Q2

REPORT INFORMATION
  Report Type: 
  Country: None (occurrence: None)
  Receive Date: 20080404
  Receipt Date: 20080401
  Transmission Date: 20081010
  Serious: Yes (Hospitalization)
  Sender: FDA-Public Use
  Company Number: US-KINGPHARMUSA00001-K200800232

PATIENT

DRUGS (26)
  1. ALTACE [Suspect]
     Dates: start: 20070808
  2. ALTACE [Suspect]
     Dates: start: 20070906
  3. VOLTAREN                           /00372301/ [Suspect]
     Dates: end: 20070904
  4. CLOPIDOGREL [Concomitant]
     Indication: ACUTE CORONARY SYNDROME
     Dosage: 75 MG, UNK
     Route: 048
     Dates: start: 20070808
  5. LEVOTHYROXINE SODIUM [Concomitant]
  6. SIMVASTATIN [Concomitant]
  7. VITAMIN B12                        /00056201/ [Concomitant]
  8. RANITIDINE [Concomitant]
     Dates: end: 20070811
  9. HYDROCHLOROTHIAZIDE [Concomitant]
     Dates: end: 20070904
  10. CALCIUM [Concomitant]
  11. NITROGLYCERIN [Concomitant]
     Dates: start: 20070807, end: 20070807
  12. NITROGLYCERIN [Concomitant]
     Dates: start: 20070807, end: 20070808
  13. LASIX [Concomitant]
     Dates: start: 20070807, end: 20070807
  14. AMITRIPTYLINE HCL [Concomitant]
  15. VITAMIN B3 [Concomitant]
  16. HYDRALAZINE HCL [Concomitant]
  17. METOPROLOL TARTRATE [Concomitant]
  18. PARIET [Concomitant]
     Dates: end: 20071015
  19. TYLENOL (CAPLET) [Concomitant]
     Dates: start: 20070807
  20. CENTRUM                            /00554501/ [Concomitant]
  21. NORVASC [Concomitant]
  22. MUCOMYST [Concomitant]
     Dates: start: 20070809, end: 20070811
  23. FOLATE SODIUM [Concomitant]
  24. HEPARIN [Concomitant]
     Dates: start: 20070807, end: 20070810
  25. ASPIRIN [Concomitant]
  26. PLAVIX [Concomitant]
     Dates: start: 20070807, end: 20070808

REACTIONS (2)
  - HYPERKALAEMIA [None]
  - NON-CARDIAC CHEST PAIN [None]
